FAERS Safety Report 7517146-1 (Version None)
Quarter: 2011Q2

REPORT INFORMATION
  Report Type: 
  Country: None (occurrence: None)
  Receive Date: 20110601
  Receipt Date: 20110524
  Transmission Date: 20111010
  Serious: Yes (Hospitalization)
  Sender: FDA-Public Use
  Company Number: FR-PFIZER INC-2011112438

PATIENT
  Age: 54 Year
  Sex: Female

DRUGS (3)
  1. ADVIL LIQUI-GELS [Suspect]
     Dosage: UNK
     Route: 048
     Dates: end: 20110401
  2. ATACAND [Concomitant]
     Indication: HYPERTENSION
  3. NAPROSYN [Concomitant]

REACTIONS (1)
  - DUODENAL ULCER HAEMORRHAGE [None]
